FAERS Safety Report 5269521-6 (Version None)
Quarter: 2007Q1

REPORT INFORMATION
  Report Type: 
  Country: None (occurrence: None)
  Receive Date: 20061213
  Receipt Date: 20031013
  Transmission Date: 20070707
  Serious: Yes (Other)
  Sender: FDA-Public Use
  Company Number: 2003UW13200

PATIENT
  Age: 77 Year
  Sex: Female
  Weight: 72.5755 kg

DRUGS (1)
  1. IRESSA [Suspect]
     Indication: NON-SMALL CELL LUNG CANCER
     Dosage: 250 MG PO
     Route: 048

REACTIONS (3)
  - DRY SKIN [None]
  - FUNGAL INFECTION [None]
  - RASH PRURITIC [None]
